FAERS Safety Report 7859098 (Version 2)
Quarter: 2013Q3

REPORT INFORMATION
  Report Type: Report from Study
  Country: CA (occurrence: CA)
  Receive Date: 20110316
  Receipt Date: 20130731
  Transmission Date: 20140515
  Serious: Yes (Hospitalization, Other)
  Sender: FDA-Public Use
  Company Number: PHHY2011CA20151

PATIENT
  Age: 70 Year
  Sex: Female

DRUGS (11)
  1. ACLASTA [Suspect]
     Indication: OSTEOPOROSIS
     Dosage: UNK UKN, UNK
     Route: 042
     Dates: start: 20080220
  2. ACLASTA [Suspect]
     Dosage: UNK UKN, UNK
     Route: 042
     Dates: start: 20090305
  3. ACLASTA [Suspect]
     Dosage: UNK UKN, UNK
     Route: 042
     Dates: start: 20100422
  4. ACLASTA [Suspect]
     Dosage: UNK UKN, UNK
     Route: 042
     Dates: start: 20110603
  5. ACLASTA [Suspect]
     Dosage: UNK UKN, UNK
     Route: 042
     Dates: start: 20120725
  6. ACLASTA [Suspect]
     Dosage: UNK UKN, UNK
     Route: 042
     Dates: start: 20130725
  7. XANAX [Concomitant]
     Dosage: 5 MG, UNK
  8. PAROXETINE [Concomitant]
     Dosage: 20 MG, UNK
  9. CRESTOR [Concomitant]
     Dosage: 5 MG, UNK
  10. CALCITE + D [Concomitant]
  11. PANTOLOC ^BYK GULDEN^ [Concomitant]

REACTIONS (6)
  - Biliary cyst [Unknown]
  - Bile duct obstruction [Unknown]
  - Pulmonary mass [Not Recovered/Not Resolved]
  - Pain [Not Recovered/Not Resolved]
  - Neck pain [Unknown]
  - Dizziness [Unknown]
